FAERS Safety Report 9601052 (Version 3)
Quarter: 2014Q4

REPORT INFORMATION
  Report Type: Spontaneous
  Country: US (occurrence: US)
  Receive Date: 20131004
  Receipt Date: 20141106
  Transmission Date: 20150529
  Serious: Yes (Other)
  Sender: FDA-Public Use
  Company Number: US-AMGEN-USASP2013022980

PATIENT
  Age: 69 Year
  Sex: Female

DRUGS (2)
  1. ENBREL [Suspect]
     Active Substance: ETANERCEPT
     Indication: RHEUMATOID ARTHRITIS
     Dosage: 50 MG, WEEKLY
     Route: 058
     Dates: start: 20130204, end: 20131223
  2. ENBREL [Suspect]
     Active Substance: ETANERCEPT
     Dosage: UNK
     Route: 065

REACTIONS (33)
  - Pain in extremity [Recovered/Resolved]
  - Mouth ulceration [Unknown]
  - Sciatica [Not Recovered/Not Resolved]
  - Head discomfort [Not Recovered/Not Resolved]
  - Injection site induration [Recovered/Resolved]
  - Drug ineffective [Unknown]
  - Tongue coated [Not Recovered/Not Resolved]
  - Blood cholesterol increased [Unknown]
  - Hypoaesthesia [Not Recovered/Not Resolved]
  - Red blood cell sedimentation rate decreased [Not Recovered/Not Resolved]
  - Nodule [Not Recovered/Not Resolved]
  - Localised infection [Recovered/Resolved]
  - Injection site pruritus [Not Recovered/Not Resolved]
  - Arthralgia [Not Recovered/Not Resolved]
  - Mobility decreased [Not Recovered/Not Resolved]
  - Back pain [Not Recovered/Not Resolved]
  - Cough [Not Recovered/Not Resolved]
  - Injection site erythema [Not Recovered/Not Resolved]
  - Skin ulcer [Recovered/Resolved]
  - Osteoarthritis [Not Recovered/Not Resolved]
  - Peripheral swelling [Not Recovered/Not Resolved]
  - Immunodeficiency [Unknown]
  - Cerumen impaction [Not Recovered/Not Resolved]
  - Injection site rash [Unknown]
  - Injection site reaction [Not Recovered/Not Resolved]
  - Joint swelling [Not Recovered/Not Resolved]
  - Hyperkeratosis [Not Recovered/Not Resolved]
  - Impaired healing [Recovered/Resolved]
  - Sinus headache [Not Recovered/Not Resolved]
  - Arthritis [Unknown]
  - Foot deformity [Not Recovered/Not Resolved]
  - Sinusitis [Not Recovered/Not Resolved]
  - Paraesthesia [Not Recovered/Not Resolved]

NARRATIVE: CASE EVENT DATE: 2013
